FAERS Safety Report 18361587 (Version 1)
Quarter: 2020Q4

REPORT INFORMATION
  Report Type: Report from Study
  Country: CA (occurrence: CA)
  Receive Date: 20201008
  Receipt Date: 20201008
  Transmission Date: 20210114
  Serious: Yes (Other)
  Sender: FDA-Public Use
  Company Number: CA-REGENERON PHARMACEUTICALS, INC.-2020-80834

PATIENT

DRUGS (1)
  1. EYLEA [Suspect]
     Active Substance: AFLIBERCEPT
     Indication: DIABETIC RETINAL OEDEMA
     Dosage: DOSE, FREQUENCY AND TOTAL NUMBER OF DOSES NOT PROVIDED
     Dates: start: 20181203

REACTIONS (3)
  - Eye operation [Unknown]
  - Visual impairment [Unknown]
  - Arthropathy [Unknown]

NARRATIVE: CASE EVENT DATE: 20200916
